FAERS Safety Report 15897129 (Version 1)
Quarter: 2019Q1

REPORT INFORMATION
  Report Type: Report from Study
  Country: US (occurrence: US)
  Receive Date: 20190131
  Receipt Date: 20190131
  Transmission Date: 20190417
  Serious: Yes (Other)
  Sender: FDA-Public Use
  Company Number: US-GLAXOSMITHKLINE-US2019GSK017189

PATIENT
  Sex: Female

DRUGS (1)
  1. BELIMUMAB SUBCUTANEOUS [Suspect]
     Active Substance: BELIMUMAB
     Route: 058

REACTIONS (8)
  - Systemic lupus erythematosus [Unknown]
  - Wrong technique in device usage process [Unknown]
  - Migraine [Unknown]
  - Stomatitis [Unknown]
  - Injection site pain [Unknown]
  - Infection [Unknown]
  - Inappropriate schedule of product administration [Unknown]
  - Renal failure [Unknown]
